FAERS Safety Report 9062246 (Version 1)
Quarter: 2013Q1

REPORT INFORMATION
  Report Type: Spontaneous
  Country: US (occurrence: None)
  Receive Date: 20130122
  Receipt Date: 20130122
  Transmission Date: 20140127
  Serious: Yes (Hospitalization)
  Sender: FDA-Public Use
  Company Number: 1554675

PATIENT
  Age: 24 Year
  Sex: Female

DRUGS (10)
  1. (MORPHINE SULPHATE) [Suspect]
     Indication: ABDOMINAL PAIN
     Dosage: NOT REPORTED, UNKNOWN. UNKNOWN
  2. HYDROCODONE W/ ACETAMINOPHEN [Suspect]
     Indication: ABDOMINAL PAIN
     Dosage: NOT REPORTED, UNKNOWN, UNKNOWN
  3. LORAZEPAM [Concomitant]
  4. CLONAZEPAM [Concomitant]
  5. DIPHENOXYLATE/ATROPINE [Concomitant]
  6. SERTRALINE HYDROCHLORIDE [Concomitant]
  7. SERTRALINE) [Concomitant]
  8. FENOFIBRATE) [Concomitant]
  9. METOPROLOL TARTRATE [Concomitant]
  10. (LEVOTHYROXIDE) [Concomitant]

REACTIONS (6)
  - Narcotic bowel syndrome [None]
  - Blood pressure increased [None]
  - Heart rate increased [None]
  - Tearfulness [None]
  - Depression [None]
  - Tachycardia [None]
